FAERS Safety Report 22864258 (Version 2)
Quarter: 2024Q1

REPORT INFORMATION
  Report Type: Other
  Country: US (occurrence: None)
  Receive Date: 20230825
  Receipt Date: 20240122
  Transmission Date: 20240409
  Serious: Yes (Other)
  Sender: FDA-Public Use
  Company Number: US-ROCHE-3409529

PATIENT

DRUGS (2)
  1. RITUXIMAB [Suspect]
     Active Substance: RITUXIMAB
     Indication: Mantle cell lymphoma
     Dosage: WEEKLY FOR FIRST 4 WEEKS, FOLLOWED BY ONCE A MONTH FOR 12 MONTHS AND SUBSEQUENTLY ONCE EVERY 2 MONTH
     Route: 042
  2. ACALABRUTINIB [Suspect]
     Active Substance: ACALABRUTINIB
     Indication: Mantle cell lymphoma
     Route: 048

REACTIONS (8)
  - Angina unstable [Unknown]
  - Syncope [Unknown]
  - Atrial fibrillation [Unknown]
  - Drug intolerance [Unknown]
  - Myalgia [Unknown]
  - Headache [Unknown]
  - Contusion [Unknown]
  - Fatigue [Unknown]
